FAERS Safety Report 10447922 (Version 5)
Quarter: 2015Q2

REPORT INFORMATION
  Report Type: Spontaneous
  Country: JP (occurrence: JP)
  Receive Date: 20140911
  Receipt Date: 20150623
  Transmission Date: 20150821
  Serious: Yes (Hospitalization, Other)
  Sender: FDA-Public Use
  Company Number: JP-ELI_LILLY_AND_COMPANY-JP201406008481

PATIENT
  Sex: Female

DRUGS (8)
  1. CLOMIFENE [Concomitant]
     Active Substance: CLOMIPHENE
     Indication: PREGNANCY
     Dosage: UNK
     Route: 048
  2. LEVEMIR [Suspect]
     Active Substance: INSULIN DETEMIR
     Indication: TYPE 1 DIABETES MELLITUS
     Dosage: 25 IU, QD
     Route: 065
  3. PROGRAF [Concomitant]
     Active Substance: TACROLIMUS\TACROLIMUS ANHYDROUS
     Indication: IMMUNOSUPPRESSION
     Dosage: 2 MG, QD
     Route: 048
     Dates: start: 2011
  4. HUMALOG [Suspect]
     Active Substance: INSULIN LISPRO
     Indication: TYPE 1 DIABETES MELLITUS
     Dosage: PRIOR TO PREGNANCY, BASAL 17 IU AND BOLUS 8 IU
     Route: 058
     Dates: start: 201211
  5. HUMALOG [Suspect]
     Active Substance: INSULIN LISPRO
     Dosage: AFTER DELIVERY, BASAL 12 IU AND BOLUS 8 IU
     Route: 058
  6. PREDNISOLONE. [Concomitant]
     Active Substance: PREDNISOLONE
     Indication: IMMUNOSUPPRESSION
     Dosage: 5 MG, QD
     Route: 065
     Dates: start: 2011
  7. PROGRAF [Concomitant]
     Active Substance: TACROLIMUS\TACROLIMUS ANHYDROUS
     Indication: IMMUNOSUPPRESSION
     Dosage: 0.4 MG, QD
     Route: 048
  8. HUMALOG [Suspect]
     Active Substance: INSULIN LISPRO
     Dosage: DURING PREGNANCY, BASAL 23 IU AND BOLUS 8 IU
     Route: 058

REACTIONS (8)
  - Gestational hypertension [Recovered/Resolved]
  - Placental infarction [Unknown]
  - Threatened labour [Unknown]
  - Abortion threatened [Unknown]
  - Maternal exposure before pregnancy [Unknown]
  - Renal impairment [Recovered/Resolved]
  - Maternal exposure during pregnancy [Unknown]
  - Oligohydramnios [Unknown]
